FAERS Safety Report 20918762 (Version 1)
Quarter: 2022Q2

REPORT INFORMATION
  Report Type: Spontaneous
  Country: US (occurrence: US)
  Receive Date: 20220606
  Receipt Date: 20220606
  Transmission Date: 20220721
  Serious: Yes (Other)
  Sender: FDA-Public Use
  Company Number: US-BAYER-2022A074883

PATIENT
  Age: 76 Year
  Sex: Male

DRUGS (1)
  1. ALEVE [Suspect]
     Active Substance: NAPROXEN SODIUM
     Indication: Pain
     Dosage: 1 EVERY 12 HOURS
     Route: 048
     Dates: end: 20220512

REACTIONS (5)
  - Gastric ulcer haemorrhage [None]
  - Diarrhoea haemorrhagic [None]
  - Starvation [None]
  - Dehydration [None]
  - Myasthenia gravis crisis [None]

NARRATIVE: CASE EVENT DATE: 20220501
